FAERS Safety Report 18012683 (Version 1)
Quarter: 2020Q3

REPORT INFORMATION
  Report Type: Spontaneous
  Country: US (occurrence: US)
  Receive Date: 20200710
  Receipt Date: 20200710
  Transmission Date: 20201103
  Serious: No
  Sender: FDA-Public Use
  Company Number: None

PATIENT
  Age: 46 Year
  Sex: Female
  Weight: 108 kg

DRUGS (3)
  1. ELDERBERRY [Concomitant]
     Active Substance: HERBALS
  2. VITAMIN C [Concomitant]
     Active Substance: ASCORBIC ACID
  3. BLUMEN ADVANCED HAND SANITIZER [Suspect]
     Active Substance: ALCOHOL
     Indication: INFECTION PROPHYLAXIS
     Dosage: ?          OTHER STRENGTH:CARBOMER;QUANTITY:7.5 OUNCE(S);?
     Route: 061
     Dates: start: 20200401, end: 20200709

REACTIONS (2)
  - Nausea [None]
  - Headache [None]

NARRATIVE: CASE EVENT DATE: 20200501
